FAERS Safety Report 6529813-7 (Version None)
Quarter: 2010Q1

REPORT INFORMATION
  Report Type: 
  Country: None (occurrence: None)
  Receive Date: 20100107
  Receipt Date: 20091231
  Transmission Date: 20100710
  Serious: Yes (Life-Threatening)
  Sender: FDA-Public Use
  Company Number: A0837204A

PATIENT
  Age: 59 Year
  Sex: Male
  Weight: 105 kg

DRUGS (2)
  1. ZANAMIVIR [Suspect]
     Indication: H1N1 INFLUENZA
     Route: 042
     Dates: start: 20091205, end: 20091229
  2. INTUBATION [Concomitant]

REACTIONS (1)
  - PANCREATITIS [None]
